FAERS Safety Report 9232687 (Version 1)
Quarter: 2013Q2

REPORT INFORMATION
  Report Type: Spontaneous
  Country: GB (occurrence: None)
  Receive Date: 20130412
  Receipt Date: 20130412
  Transmission Date: 20140414
  Serious: Yes (Other)
  Sender: FDA-Public Use
  Company Number: KAD201304-00447

PATIENT
  Age: 44 Year
  Sex: Male

DRUGS (3)
  1. RIBAVIRIN [Suspect]
     Indication: HEPATITIS C
  2. INCIVO (TELAPREVIR) [Suspect]
     Indication: HEPATITIS C
     Dosage: THRICE DAILY.
     Route: 048
     Dates: start: 20121026, end: 20130118
  3. PEGYLATED INTERFERON NOS [Suspect]
     Indication: HEPATITIS C

REACTIONS (1)
  - Viral load increased [None]
